FAERS Safety Report 14358543 (Version 1)
Quarter: 2018Q1

REPORT INFORMATION
  Report Type: Spontaneous
  Country: US (occurrence: US)
  Receive Date: 20180105
  Receipt Date: 20180105
  Transmission Date: 20180509
  Serious: No
  Sender: FDA-Public Use
  Company Number: US-SA-2017SA213448

PATIENT
  Sex: Male

DRUGS (1)
  1. DUPIXENT [Suspect]
     Active Substance: DUPILUMAB
     Indication: DERMATITIS ATOPIC
     Dosage: FREQUNCY- EVERY 4 WEEK DOSE:150 MILLIGRAM(S)/MILLILITRE
     Route: 058
     Dates: start: 20170905

REACTIONS (3)
  - Product use issue [Unknown]
  - Anxiety [Recovering/Resolving]
  - Depression [Recovering/Resolving]
